FAERS Safety Report 6506230-7 (Version None)
Quarter: 2009Q4

REPORT INFORMATION
  Report Type: 
  Country: None (occurrence: None)
  Receive Date: 20091218
  Receipt Date: 20091210
  Transmission Date: 20100525
  Serious: Yes (Hospitalization, Other)
  Sender: FDA-Public Use
  Company Number: PHHO2009DE15348

PATIENT
  Sex: Male
  Weight: 115 kg

DRUGS (10)
  1. AFINITOR [Suspect]
     Indication: HEPATIC CANCER METASTATIC
     Dosage: UNK
     Route: 048
     Dates: start: 20081223, end: 20090616
  2. AVASTIN [Suspect]
     Indication: HEPATIC CANCER METASTATIC
     Dosage: UNK
  3. METOCLOPRAMIDE [Concomitant]
  4. PANTOPRAZOLE [Concomitant]
  5. CONCOR [Concomitant]
  6. CLOPIDOGREL [Concomitant]
  7. PANTOZOL [Concomitant]
  8. TORASEMIDE [Concomitant]
  9. AQUAPHOR [Concomitant]
  10. OMNIC [Concomitant]

REACTIONS (4)
  - DECREASED APPETITE [None]
  - GASTRITIS [None]
  - HYPERTHYROIDISM [None]
  - NAUSEA [None]
